FAERS Safety Report 23267564 (Version 2)
Quarter: 2024Q1

REPORT INFORMATION
  Report Type: Spontaneous
  Country: US (occurrence: US)
  Receive Date: 20231206
  Receipt Date: 20240117
  Transmission Date: 20240409
  Serious: Yes (Other)
  Sender: FDA-Public Use
  Company Number: US-SK LIFE SCIENCE, INC.-SKPVG-2023-000092

PATIENT

DRUGS (5)
  1. XCOPRI [Suspect]
     Active Substance: CENOBAMATE
     Indication: Seizure
     Dosage: 12.5 MILLIGRAM, QD (12.5MG/25MG TITRATION PACK)
     Route: 048
     Dates: start: 20221223
  2. XCOPRI [Suspect]
     Active Substance: CENOBAMATE
     Indication: Epilepsy
     Dosage: 25 MILLIGRAM, QD (12.5MG/25MG TITRATION PACK)
     Route: 048
     Dates: end: 20230120
  3. XCOPRI [Suspect]
     Active Substance: CENOBAMATE
     Dosage: 100 MILLIGRAM, QD
     Route: 048
  4. KEPPRA [Suspect]
     Active Substance: LEVETIRACETAM
     Indication: Product used for unknown indication
     Dosage: 1000 MILLIGRAM, BID
     Route: 065
  5. KEPPRA [Suspect]
     Active Substance: LEVETIRACETAM
     Dosage: 1500 MILLIGRAM, BID
     Route: 065

REACTIONS (8)
  - Cerebrovascular accident [Unknown]
  - Dementia [Not Recovered/Not Resolved]
  - Product dose omission issue [Recovered/Resolved]
  - Seizure [Not Recovered/Not Resolved]
  - Circumstance or information capable of leading to medication error [Recovered/Resolved]
  - Memory impairment [Not Recovered/Not Resolved]
  - Urinary tract infection [Unknown]
  - Amnesia [Not Recovered/Not Resolved]

NARRATIVE: CASE EVENT DATE: 20221201
